FAERS Safety Report 14288597 (Version 2)
Quarter: 2018Q2

REPORT INFORMATION
  Report Type: Spontaneous
  Country: US (occurrence: US)
  Receive Date: 20171214
  Receipt Date: 20180508
  Transmission Date: 20180711
  Serious: No
  Sender: FDA-Public Use
  Company Number: US-VIFOR (INTERNATIONAL) INC.-VIT-2017-13626

PATIENT
  Sex: Female

DRUGS (12)
  1. LOSARTAN POTASSIUM. [Concomitant]
     Active Substance: LOSARTAN POTASSIUM
  2. SENSIPAR [Concomitant]
     Active Substance: CINACALCET HYDROCHLORIDE
  3. TRAMADOL HYDROCHLORIDE. [Concomitant]
     Active Substance: TRAMADOL HYDROCHLORIDE
  4. VELTASSA [Suspect]
     Active Substance: PATIROMER
     Indication: HYPERKALAEMIA
     Route: 048
     Dates: start: 20160614
  5. ACETYLSALICYLIC ACID [Concomitant]
     Active Substance: ASPIRIN
  6. GABAPENTIN. [Concomitant]
     Active Substance: GABAPENTIN
  7. ASCORBIC ACID~~PYRIDOXINE HYDROCHLORIDE~~BIOTIN~~FOLIC ACID~~THIAMINE~~NICOTINIC ACID~~PANTOTHENIC A [Concomitant]
  8. PROMETHAZINE HYDROCHLORIDE. [Concomitant]
     Active Substance: PROMETHAZINE HYDROCHLORIDE
  9. NEXIUM [Concomitant]
     Active Substance: ESOMEPRAZOLE MAGNESIUM
  10. AMLODIPINE BESILATE [Concomitant]
     Active Substance: AMLODIPINE BESYLATE
  11. LOVASTATIN. [Concomitant]
     Active Substance: LOVASTATIN
  12. RENVELA [Concomitant]
     Active Substance: SEVELAMER CARBONATE

REACTIONS (2)
  - Nausea [Unknown]
  - Drug dose omission [Unknown]
